FAERS Safety Report 8288059-5 (Version None)
Quarter: 2012Q2

REPORT INFORMATION
  Report Type: 
  Country: None (occurrence: None)
  Receive Date: 20120416
  Receipt Date: 20120411
  Transmission Date: 20120825
  Serious: Yes (Other)
  Sender: FDA-Public Use
  Company Number: US-BAYER-2012-036015

PATIENT
  Age: 56 Year
  Sex: Female

DRUGS (1)
  1. MAGNEVIST [Suspect]
     Indication: NUCLEAR MAGNETIC RESONANCE IMAGING
     Dosage: UNK UNK, ONCE
     Route: 015
     Dates: start: 20120409, end: 20120409

REACTIONS (2)
  - INJECTION SITE ERYTHEMA [None]
  - INJECTION SITE PAIN [None]
